FAERS Safety Report 9075297 (Version 1)
Quarter: 2013Q1

REPORT INFORMATION
  Report Type: Report from Study
  Country: US (occurrence: US)
  Receive Date: 20130131
  Receipt Date: 20130131
  Transmission Date: 20140127
  Serious: Yes (Hospitalization)
  Sender: FDA-Public Use
  Company Number: US-ABBOTT-12P-163-1006785-00

PATIENT
  Sex: Female

DRUGS (3)
  1. HUMIRA PEN [Suspect]
     Indication: CROHN^S DISEASE
     Dosage: ONE TIME DOSE
     Route: 058
     Dates: start: 2011, end: 2011
  2. HUMIRA PEN [Suspect]
     Dosage: ONE TIME DOSE
     Route: 058
     Dates: start: 2011, end: 2011
  3. HUMIRA PEN [Suspect]
     Route: 058
     Dates: start: 2011

REACTIONS (2)
  - Crohn^s disease [Recovered/Resolved]
  - Injection site pain [Recovered/Resolved]
